FAERS Safety Report 23349365 (Version 1)
Quarter: 2023Q4

REPORT INFORMATION
  Report Type: Spontaneous
  Country: US (occurrence: None)
  Receive Date: 20231229
  Receipt Date: 20231229
  Transmission Date: 20240110
  Serious: Yes (Death)
  Sender: FDA-Public Use
  Company Number: US-FARMAPROD-202312-3723

PATIENT
  Sex: Male
  Weight: 48.124 kg

DRUGS (27)
  1. OXERVATE [Suspect]
     Active Substance: CENEGERMIN-BKBJ
     Indication: Neurotrophic keratopathy
     Route: 047
     Dates: start: 20231011
  2. EPOGEN [Concomitant]
     Active Substance: ERYTHROPOIETIN
     Dosage: VIAL
  3. DARZALEX [Concomitant]
     Active Substance: DARATUMUMAB
     Dosage: 400MG/20ML  VIAL
  4. VEMLIDY [Concomitant]
     Active Substance: TENOFOVIR ALAFENAMIDE FUMARATE
  5. CYCLOPHOSPHAMIDE [Concomitant]
     Active Substance: CYCLOPHOSPHAMIDE
  6. UNSPECIFIED INGREDIENT [Concomitant]
     Active Substance: UNSPECIFIED INGREDIENT
  7. FLUOROMETHOLONE [Concomitant]
     Active Substance: FLUOROMETHOLONE
  8. HYDRALAZINE HCL [Concomitant]
     Active Substance: HYDRALAZINE HYDROCHLORIDE
  9. LOKELMA [Concomitant]
     Active Substance: SODIUM ZIRCONIUM CYCLOSILICATE
  10. ZINC OXIDE [Concomitant]
     Active Substance: ZINC OXIDE
  11. DEXAMETHASONE [Concomitant]
     Active Substance: DEXAMETHASONE
  12. OFLOXACIN [Concomitant]
     Active Substance: OFLOXACIN
  13. NIFEDIPINE [Concomitant]
     Active Substance: NIFEDIPINE
  14. REFRESH TEARS [Concomitant]
     Active Substance: CARBOXYMETHYLCELLULOSE SODIUM
  15. ERYTHROMYCIN [Concomitant]
     Active Substance: ERYTHROMYCIN
  16. SODIUM BICARBONATE [Concomitant]
     Active Substance: SODIUM BICARBONATE
  17. PRILOSEC [Concomitant]
     Active Substance: OMEPRAZOLE MAGNESIUM
  18. ACYCLOVIR [Concomitant]
     Active Substance: ACYCLOVIR
  19. VITAMIN D3 [Concomitant]
     Active Substance: CHOLECALCIFEROL
  20. VITAMINS [Concomitant]
     Active Substance: VITAMINS
  21. IMODIUM [Concomitant]
     Active Substance: LOPERAMIDE HYDROCHLORIDE
  22. REFRESH LIQUIGEL [Concomitant]
     Active Substance: CARBOXYMETHYLCELLULOSE SODIUM
  23. ERYTHROMYCIN [Concomitant]
     Active Substance: ERYTHROMYCIN
  24. FUROSEMIDE [Concomitant]
     Active Substance: FUROSEMIDE
  25. LOPERAMIDE [Concomitant]
     Active Substance: LOPERAMIDE
  26. ATROPINE SULFATE [Concomitant]
     Active Substance: ATROPINE SULFATE
  27. CREON [Concomitant]
     Active Substance: PANCRELIPASE AMYLASE\PANCRELIPASE LIPASE\PANCRELIPASE PROTEASE
     Dosage: 24-76-120K

REACTIONS (2)
  - Death [Fatal]
  - Wrong technique in product usage process [Unknown]
